FAERS Safety Report 8066611-X (Version None)
Quarter: 2012Q1

REPORT INFORMATION
  Report Type: 
  Country: None (occurrence: None)
  Receive Date: 20120124
  Receipt Date: 20120116
  Transmission Date: 20120608
  Serious: Yes (Other)
  Sender: FDA-Public Use
  Company Number: PHHY2011BR45618

PATIENT
  Sex: Male

DRUGS (2)
  1. CLOZAPINE [Suspect]
     Route: 048
     Dates: start: 20110829
  2. CLOZAPINE [Suspect]
     Indication: DELUSION
     Dosage: 100 MG,
     Dates: start: 20100601

REACTIONS (3)
  - CARDIAC DISORDER [None]
  - TARDIVE DYSKINESIA [None]
  - DRUG INEFFECTIVE [None]
